APPROVED DRUG PRODUCT: LEUCOVORIN CALCIUM
Active Ingredient: LEUCOVORIN CALCIUM
Strength: EQ 100MG BASE/VIAL
Dosage Form/Route: INJECTABLE;INJECTION
Application: A217021 | Product #002 | TE Code: AP
Applicant: HAINAN POLY PHARM CO LTD
Approved: Jul 10, 2023 | RLD: No | RS: No | Type: RX